FAERS Safety Report 16382153 (Version 1)
Quarter: 2019Q2

REPORT INFORMATION
  Report Type: Report from Study
  Country: BR (occurrence: BR)
  Receive Date: 20190603
  Receipt Date: 20190603
  Transmission Date: 20190711
  Serious: Yes (Hospitalization, Other)
  Sender: FDA-Public Use
  Company Number: BR-ROCHE-2328744

PATIENT
  Age: 15 Year
  Sex: Female
  Weight: 49 kg

DRUGS (3)
  1. XOLAIR [Suspect]
     Active Substance: OMALIZUMAB
     Indication: URTICARIA
     Route: 058
     Dates: start: 20171219
  2. XOLAIR [Suspect]
     Active Substance: OMALIZUMAB
     Dosage: UNK
     Route: 065
     Dates: start: 20190507
  3. XOLAIR [Suspect]
     Active Substance: OMALIZUMAB
     Route: 058
     Dates: start: 201802

REACTIONS (11)
  - Blister [Unknown]
  - Throat tightness [Unknown]
  - Eye irritation [Unknown]
  - Swelling face [Not Recovered/Not Resolved]
  - Urticaria [Unknown]
  - Malaise [Not Recovered/Not Resolved]
  - Anaphylactic reaction [Unknown]
  - Stomatitis [Unknown]
  - Angioedema [Unknown]
  - Hypersensitivity [Not Recovered/Not Resolved]
  - Nasal discomfort [Unknown]

NARRATIVE: CASE EVENT DATE: 20180402
